FAERS Safety Report 5193602-9 (Version None)
Quarter: 2006Q4

REPORT INFORMATION
  Report Type: 
  Country: None (occurrence: None)
  Receive Date: 20061228
  Receipt Date: 20061010
  Transmission Date: 20070319
  Serious: No
  Sender: FDA-Public Use
  Company Number: US-GLAXOSMITHKLINE-A0623084A

PATIENT
  Age: 86 Year
  Sex: Female

DRUGS (2)
  1. FLUTICASONE PROPIONATE [Suspect]
     Dosage: 2PUFF PER DAY
     Route: 045
     Dates: start: 20060901
  2. ASPIRIN [Concomitant]

REACTIONS (1)
  - RHINORRHOEA [None]
